FAERS Safety Report 5994425-0 (Version None)
Quarter: 2008Q4

REPORT INFORMATION
  Report Type: 
  Country: None (occurrence: None)
  Receive Date: 20081212
  Receipt Date: 20080909
  Transmission Date: 20090506
  Serious: No
  Sender: FDA-Public Use
  Company Number: US-ABBOTT-08P-163-0475184-00

PATIENT
  Sex: Female
  Weight: 65.83 kg

DRUGS (7)
  1. HUMIRA [Suspect]
     Indication: COLITIS ULCERATIVE
     Dosage: 1 DAY
     Dates: start: 20080905
  2. HUMIRA [Suspect]
  3. HUMIRA [Suspect]
  4. BUPROPION HCL [Concomitant]
     Indication: DEPRESSION
  5. CITALOPRAM HYDROBROMIDE [Concomitant]
     Indication: DEPRESSION
  6. PANTESA [Concomitant]
     Indication: COLITIS ULCERATIVE
  7. ROWASA [Concomitant]
     Indication: COLITIS ULCERATIVE

REACTIONS (1)
  - INFLUENZA LIKE ILLNESS [None]
